FAERS Safety Report 9837868 (Version 1)
Quarter: 2013Q4

REPORT INFORMATION
  Report Type: Spontaneous
  Country: US (occurrence: None)
  Receive Date: 20131205
  Receipt Date: 20131205
  Transmission Date: 20140711
  Serious: No
  Sender: FDA-Public Use
  Company Number: 163-POMAL-13105161

PATIENT
  Age: 71 Year
  Sex: Male

DRUGS (4)
  1. POMALYST (POMALIDOMIDE) (4 MILLIGRAM, CAPSULES) [Suspect]
     Indication: PLASMA CELL MYELOMA
     Dosage: 4 MG, 21 IN 21 D, PO
     Route: 048
     Dates: start: 20130617
  2. HYDROCHLOROTHIAZIDE (HYDROCHLOROTHIAZIDE) [Concomitant]
  3. METOPROLOL TARTRATE (METOPROLOL TARTRATE) [Concomitant]
  4. HYDRALAZINE HYDROCHLORIDE [Concomitant]

REACTIONS (3)
  - Oedema [None]
  - Wheezing [None]
  - Chromaturia [None]
